FAERS Safety Report 10234727 (Version 1)
Quarter: 2014Q2

REPORT INFORMATION
  Report Type: Spontaneous
  Country: US (occurrence: US)
  Receive Date: 20140613
  Receipt Date: 20140613
  Transmission Date: 20141212
  Serious: No
  Sender: FDA-Public Use
  Company Number: US-SHIRE-US201402599

PATIENT
  Sex: Male

DRUGS (4)
  1. VYVANSE [Suspect]
     Indication: PRODUCT USED FOR UNKNOWN INDICATION
     Dosage: 70 MG, UNKNOWN
     Route: 048
  2. VYVANSE [Suspect]
     Dosage: 50 MG, UNKNOWN
     Route: 048
  3. VYVANSE [Suspect]
     Dosage: 50 MG, UNKNOWN
     Route: 048
  4. VYVANSE [Suspect]
     Dosage: 60 MG, UNKNOWN
     Route: 048

REACTIONS (2)
  - Drug effect variable [Unknown]
  - Product quality issue [Unknown]
